FAERS Safety Report 8915690 (Version 2)
Quarter: 2012Q4

REPORT INFORMATION
  Report Type: 
  Country: US (occurrence: US)
  Receive Date: 20121119
  Receipt Date: 20121127
  Transmission Date: 20130627
  Serious: No
  Sender: FDA-Public Use
  Company Number: US-009507513-1210USA009857

PATIENT
  Sex: Female
  Weight: 72.11 kg

DRUGS (28)
  1. L-THYROXIN [Concomitant]
     Indication: PRODUCT USED FOR UNKNOWN INDICATION
     Dosage: 125 Microgram, qam
  2. PROPRANOLOL HYDROCHLORIDE [Concomitant]
     Indication: PRODUCT USED FOR UNKNOWN INDICATION
     Dosage: 20 mg, bid
  3. LIPITOR [Concomitant]
     Indication: PRODUCT USED FOR UNKNOWN INDICATION
     Dosage: 20 mg, qpm
  4. ZANTAC [Concomitant]
     Indication: PRODUCT USED FOR UNKNOWN INDICATION
     Dosage: 150 mg, qpm
  5. ALIGN [Concomitant]
     Indication: PRODUCT USED FOR UNKNOWN INDICATION
     Dosage: 1 DF, qam
  6. SPIRONO [Concomitant]
     Indication: PRODUCT USED FOR UNKNOWN INDICATION
     Dosage: 1 DF, qam
  7. HYDROCHLOROTHIAZIDE [Concomitant]
     Indication: PRODUCT USED FOR UNKNOWN INDICATION
     Dosage: 1 DF, qam
  8. TRETINOIN [Concomitant]
     Indication: PRODUCT USED FOR UNKNOWN INDICATION
     Dosage: 1 DF, qpm
  9. PREMARIN [Concomitant]
     Indication: PRODUCT USED FOR UNKNOWN INDICATION
     Dosage: 2 g, biw
  10. BETAMETHASONE DIPROPIONATE [Concomitant]
     Indication: PRODUCT USED FOR UNKNOWN INDICATION
     Dosage: 1 %, biw
  11. DIAZEPAM [Concomitant]
     Indication: PRODUCT USED FOR UNKNOWN INDICATION
     Dosage: 5 mg, prn
  12. VESICARE [Concomitant]
     Indication: PRODUCT USED FOR UNKNOWN INDICATION
     Dosage: 5 mg, qam
  13. CENTRUM (MINERALS (UNSPECIFIED) (+) VITAMINS (UNSPECIFIED)) [Concomitant]
     Indication: PRODUCT USED FOR UNKNOWN INDICATION
     Dosage: 1 DF, qam
  14. ASCORBIC ACID [Concomitant]
     Indication: PRODUCT USED FOR UNKNOWN INDICATION
     Dosage: 500 mg, qam
  15. CRANBERRY [Concomitant]
     Indication: PRODUCT USED FOR UNKNOWN INDICATION
     Dosage: 300 mg, bid
  16. ASPIRIN [Concomitant]
     Indication: PRODUCT USED FOR UNKNOWN INDICATION
     Dosage: 81 mg, qpm
  17. CITRACAL [Concomitant]
     Indication: PRODUCT USED FOR UNKNOWN INDICATION
     Dosage: 1 DF, tid
  18. VITAMIN D (UNSPECIFIED) [Concomitant]
     Indication: PRODUCT USED FOR UNKNOWN INDICATION
     Dosage: 1000 IU, qam
  19. SODIUM CHLORIDE [Concomitant]
     Indication: PRODUCT USED FOR UNKNOWN INDICATION
     Dosage: 1 g, qam
  20. MIRALAX [Concomitant]
     Indication: PRODUCT USED FOR UNKNOWN INDICATION
     Dosage: 17 g, qam
  21. KYTRIL [Concomitant]
     Indication: PRODUCT USED FOR UNKNOWN INDICATION
     Dosage: 1 mg, prn
  22. COMPAZINE [Concomitant]
     Indication: PRODUCT USED FOR UNKNOWN INDICATION
     Dosage: 10 mg, qpm
  23. NYSTATIN [Concomitant]
     Indication: RASH
     Dosage: 30 g, bid
  24. TRIAMCINOLONE [Concomitant]
     Indication: RASH
     Dosage: 30 g, bid
  25. ATIVAN [Concomitant]
     Indication: PRODUCT USED FOR UNKNOWN INDICATION
     Dosage: 0.5 mg, qpm
  26. AVASTIN (ATORVASTATIN CALCIUM) [Concomitant]
     Indication: PRODUCT USED FOR UNKNOWN INDICATION
  27. ZEGERID OTC CAPSULES [Suspect]
     Indication: DYSPEPSIA
     Dosage: 20 mg, bid
     Route: 048
     Dates: start: 2010
  28. ZEGERID OTC CAPSULES [Suspect]
     Indication: MEDICAL OBSERVATION

REACTIONS (2)
  - Incorrect drug administration duration [Unknown]
  - Overdose [Unknown]
